FAERS Safety Report 20319523 (Version 2)
Quarter: 2022Q1

REPORT INFORMATION
  Report Type: Report from Study
  Country: US (occurrence: US)
  Receive Date: 20220110
  Receipt Date: 20220312
  Transmission Date: 20220423
  Serious: Yes (Hospitalization, Other)
  Sender: FDA-Public Use
  Company Number: US-ABBVIE-22K-163-4226457-00

PATIENT
  Age: 81 Year
  Sex: Female

DRUGS (2)
  1. CREON [Suspect]
     Active Substance: PANCRELIPASE AMYLASE\PANCRELIPASE LIPASE\PANCRELIPASE PROTEASE
     Indication: Pancreatic cyst
     Dosage: 2 CAPSULES BY MOUTH 3 CAPSULES WITH MEALS AND 1 CAPSULE WITH SNACK
     Route: 048
     Dates: start: 202010, end: 202106
  2. CREON [Suspect]
     Active Substance: PANCRELIPASE AMYLASE\PANCRELIPASE LIPASE\PANCRELIPASE PROTEASE
     Route: 048

REACTIONS (4)
  - Hiatus hernia [Unknown]
  - Pancreatic cyst [Unknown]
  - Pain [Unknown]
  - Off label use [Unknown]

NARRATIVE: CASE EVENT DATE: 20210601
